FAERS Safety Report 7057846-3 (Version None)
Quarter: 2010Q4

REPORT INFORMATION
  Report Type: 
  Country: None (occurrence: None)
  Receive Date: 20101022
  Receipt Date: 20101015
  Transmission Date: 20110411
  Serious: Yes (Other)
  Sender: FDA-Public Use
  Company Number: US-PFIZER INC-2010114875

PATIENT
  Sex: Female
  Weight: 54.422 kg

DRUGS (9)
  1. CHANTIX [Suspect]
     Indication: SMOKING CESSATION THERAPY
     Dosage: 0.5 MG, 1X/DAY
     Route: 048
     Dates: start: 20100826
  2. PRISTIQ [Concomitant]
     Indication: DEPRESSION
     Dosage: 100 MG, 1X/DAY
     Route: 048
  3. NEXIUM [Concomitant]
     Indication: PROPHYLAXIS AGAINST GASTROINTESTINAL ULCER
     Dosage: 40 MG, 1X/DAY
     Route: 048
  4. LEVAQUIN [Concomitant]
     Indication: RESPIRATORY TRACT CONGESTION
     Dosage: 500 MG, UNK
  5. ESTROGENS CONJUGATED [Concomitant]
     Indication: HORMONE REPLACEMENT THERAPY
     Dosage: 1.25 MG, 1X/DAY
     Route: 048
  6. DIFLUCAN [Concomitant]
     Indication: FUNGAL INFECTION
     Dosage: 100 MG, 1X/DAY
     Route: 048
  7. TRAZODONE [Concomitant]
     Indication: SLEEP DISORDER
     Dosage: UNK MG, 1X/DAY
  8. CITRACAL + D [Concomitant]
     Indication: SUPPLEMENTATION THERAPY
     Dosage: 400 MG, 2X/DAY
     Route: 048
  9. MULTI-VITAMINS [Concomitant]
     Indication: SUPPLEMENTATION THERAPY
     Dosage: UNK

REACTIONS (2)
  - BLOOD AMYLASE INCREASED [None]
  - OESOPHAGEAL PAIN [None]
